FAERS Safety Report 16338277 (Version 3)
Quarter: 2019Q2

REPORT INFORMATION
  Report Type: Spontaneous
  Country: US (occurrence: US)
  Receive Date: 20190521
  Receipt Date: 20190611
  Transmission Date: 20190711
  Serious: Yes (Hospitalization, Other)
  Sender: FDA-Public Use
  Company Number: US-PFIZER INC-2019102300

PATIENT
  Sex: Female

DRUGS (3)
  1. THERMACARE ULTRA [Suspect]
     Active Substance: CAMPHOR (SYNTHETIC)\CAPSICUM OLEORESIN\MENTHOL\METHYL SALICYLATE
     Indication: LIGAMENT SPRAIN
     Dosage: UNK
     Dates: start: 201901
  2. THERMACARE ULTRA [Suspect]
     Active Substance: CAMPHOR (SYNTHETIC)\CAPSICUM OLEORESIN\MENTHOL\METHYL SALICYLATE
     Indication: MYALGIA
  3. THERMACARE ULTRA [Suspect]
     Active Substance: CAMPHOR (SYNTHETIC)\CAPSICUM OLEORESIN\MENTHOL\METHYL SALICYLATE
     Indication: PAIN IN EXTREMITY

REACTIONS (6)
  - Malaise [Unknown]
  - Application site pain [Unknown]
  - Skin swelling [Unknown]
  - Drug ineffective [Not Recovered/Not Resolved]
  - Application site inflammation [Unknown]
  - Application site erythema [Unknown]

NARRATIVE: CASE EVENT DATE: 201901
